FAERS Safety Report 5386511-3 (Version None)
Quarter: 2007Q3

REPORT INFORMATION
  Report Type: 
  Country: None (occurrence: None)
  Receive Date: 20070710
  Receipt Date: 20070705
  Transmission Date: 20080115
  Serious: Yes (Hospitalization)
  Sender: FDA-Public Use
  Company Number: S07-USA-02090-01

PATIENT
  Age: 35 Year
  Sex: Female

DRUGS (4)
  1. LEXAPRO [Suspect]
     Indication: ANXIETY
     Dosage: 10 MG QD PO
     Route: 048
     Dates: start: 20061018, end: 20061121
  2. PRENATAL VITAMINS (NOS) [Concomitant]
  3. AMBIEN [Concomitant]
  4. FIORICET (BUTALBITAL/ACETAMINOPHEN/CAFFEINE) [Concomitant]

REACTIONS (9)
  - BLOOD SODIUM DECREASED [None]
  - BREECH PRESENTATION [None]
  - CAESAREAN SECTION [None]
  - DRUG EXPOSURE DURING PREGNANCY [None]
  - EATING DISORDER [None]
  - INSOMNIA [None]
  - PREGNANCY [None]
  - PREMATURE LABOUR [None]
  - VOMITING [None]
